FAERS Safety Report 17052789 (Version 1)
Quarter: 2019Q4

REPORT INFORMATION
  Report Type: Report from Study
  Country: DE (occurrence: DE)
  Receive Date: 20191120
  Receipt Date: 20191120
  Transmission Date: 20200122
  Serious: Yes (Other)
  Sender: FDA-Public Use
  Company Number: PHHY2018DE073951

PATIENT
  Sex: Male

DRUGS (7)
  1. AMITRIPTYLINE [Concomitant]
     Active Substance: AMITRIPTYLINE
     Indication: DEPRESSION
     Dosage: 50 MG
     Route: 065
  2. CITALOPRAM [Concomitant]
     Active Substance: CITALOPRAM HYDROBROMIDE
     Indication: DEPRESSION
     Dosage: 30 MG
     Route: 065
  3. DIPHTHERIA TOXOID NOS [Concomitant]
     Active Substance: CORYNEBACTERIUM DIPHTHERIAE TOXOID ANTIGEN (FORMALDEHYDE INACTIVATED)
     Indication: IMMUNISATION
     Dosage: UNK
     Route: 065
     Dates: start: 20171123, end: 20171123
  4. GILENYA [Suspect]
     Active Substance: FINGOLIMOD HYDROCHLORIDE
     Indication: MULTIPLE SCLEROSIS
     Dosage: 0.5 MG, QD
     Route: 048
     Dates: start: 20171011
  5. ENCEPHALITIS VACCINES [Concomitant]
     Indication: IMMUNISATION
     Dosage: UNK
     Route: 065
     Dates: start: 20171123, end: 20171123
  6. AMLODIPINE [Concomitant]
     Active Substance: AMLODIPINE BESYLATE
     Indication: HYPERTENSION
     Dosage: 5 MG
     Route: 065
  7. CANDESARTAN. [Concomitant]
     Active Substance: CANDESARTAN
     Indication: HYPERTENSION
     Dosage: 8 MG
     Route: 065

REACTIONS (2)
  - Mitral valve incompetence [Not Recovered/Not Resolved]
  - Hypertension [Unknown]

NARRATIVE: CASE EVENT DATE: 20180201
